FAERS Safety Report 9722848 (Version 2)
Quarter: 2013Q4

REPORT INFORMATION
  Report Type: Spontaneous
  Country: US (occurrence: US)
  Receive Date: 20131202
  Receipt Date: 20131209
  Transmission Date: 20140711
  Serious: Yes (Death, Hospitalization, Other)
  Sender: FDA-Public Use
  Company Number: US-009507513-1311USA011716

PATIENT
  Age: 69 Year
  Sex: Female

DRUGS (2)
  1. TEMODAR [Suspect]
     Indication: BRAIN CANCER METASTATIC
     Dosage: 100 MG /ONE TWO HOURS BEFORE FOOD
     Route: 048
     Dates: start: 201310, end: 20131125
  2. TARCEVA [Concomitant]

REACTIONS (4)
  - Death [Fatal]
  - Coma [Not Recovered/Not Resolved]
  - Tremor [Not Recovered/Not Resolved]
  - Dysphagia [Not Recovered/Not Resolved]
